FAERS Safety Report 9770984 (Version 2)
Quarter: 2013Q4

REPORT INFORMATION
  Report Type: Spontaneous
  Country: US (occurrence: US)
  Receive Date: 20131218
  Receipt Date: 20131218
  Transmission Date: 20140711
  Serious: No
  Sender: FDA-Public Use
  Company Number: US-MYLANLABS-2013S1007826

PATIENT
  Sex: Female

DRUGS (1)
  1. ROCURONIUM BROMIDE INJECTION [Suspect]
     Dates: start: 20130403, end: 20130403

REACTIONS (1)
  - Drug ineffective [Recovered/Resolved]
